FAERS Safety Report 18722206 (Version 1)
Quarter: 2021Q1

REPORT INFORMATION
  Report Type: Report from Study
  Country: None (occurrence: US)
  Receive Date: 20210111
  Receipt Date: 20210111
  Transmission Date: 20210419
  Serious: Yes (Death)
  Sender: FDA-Public Use
  Company Number: US-UNICHEM PHARMACEUTICALS (USA) INC-UCM202012-001550

PATIENT
  Sex: Male

DRUGS (1)
  1. LAMOTRIGINE. [Suspect]
     Active Substance: LAMOTRIGINE
     Indication: BIPOLAR DISORDER
     Dosage: UNKNOWN

REACTIONS (4)
  - Stevens-Johnson syndrome [Fatal]
  - Multiple organ dysfunction syndrome [Fatal]
  - Thrombosis [Fatal]
  - Coagulopathy [Fatal]
